FAERS Safety Report 6139658-8 (Version None)
Quarter: 2009Q2

REPORT INFORMATION
  Report Type: 
  Country: None (occurrence: None)
  Receive Date: 20090401
  Receipt Date: 20090126
  Transmission Date: 20091009
  Serious: No
  Sender: FDA-Public Use
  Company Number: US-TYCO HEALTHCARE/MALLINCKRODT-T200900149

PATIENT
  Sex: Male
  Weight: 80.952 kg

DRUGS (6)
  1. TECHNETIUM TC 99M SESTAMIBI [Suspect]
     Indication: SCAN MYOCARDIAL PERFUSION
     Dosage: UNK
     Route: 042
     Dates: start: 20081129, end: 20081129
  2. TECHNETIUM TC 99M SESTAMIBI [Suspect]
     Dosage: UNK
     Route: 042
     Dates: start: 20081129, end: 20081129
  3. ULTRA-TECHNEKOW [Suspect]
     Indication: SCAN MYOCARDIAL PERFUSION
     Dosage: 40 MCI, UNK
     Route: 042
     Dates: start: 20081129, end: 20081129
  4. ULTRA-TECHNEKOW [Suspect]
     Dosage: 40 MCI, UNK
     Route: 042
     Dates: start: 20081129, end: 20081129
  5. ACTONEL [Concomitant]
     Dosage: UNK
     Route: 048
  6. ASPIRIN [Concomitant]
     Dosage: 81 MG, QD
     Route: 048

REACTIONS (2)
  - HYPOAESTHESIA [None]
  - PARAESTHESIA ORAL [None]
